FAERS Safety Report 21172887 (Version 2)
Quarter: 2022Q3

REPORT INFORMATION
  Report Type: Spontaneous
  Country: US (occurrence: US)
  Receive Date: 20220804
  Receipt Date: 20220820
  Transmission Date: 20221027
  Serious: Yes (Other)
  Sender: FDA-Public Use
  Company Number: US-TEVA-2022-US-2060040

PATIENT
  Age: 79 Year
  Sex: Female

DRUGS (13)
  1. METOPROLOL TARTRATE [Suspect]
     Active Substance: METOPROLOL TARTRATE
     Indication: Hypertension
     Route: 065
  2. LISINOPRIL [Suspect]
     Active Substance: LISINOPRIL
     Indication: Hypertension
     Route: 065
  3. LORAZEPAM [Suspect]
     Active Substance: LORAZEPAM
     Indication: Generalised anxiety disorder
     Dosage: AS NEEDED OVER THE PAST 30 YEARS
     Route: 065
  4. ESZOPICLONE [Suspect]
     Active Substance: ESZOPICLONE
     Indication: Sleep disorder
     Route: 065
  5. AMLODIPINE [Concomitant]
     Active Substance: AMLODIPINE BESYLATE
     Indication: Hypertension
     Route: 065
  6. SIMVASTATIN [Concomitant]
     Active Substance: SIMVASTATIN
     Indication: Hyperlipidaemia
     Route: 065
  7. METFORMIN [Concomitant]
     Active Substance: METFORMIN HYDROCHLORIDE
     Indication: Type 2 diabetes mellitus
     Route: 065
  8. DICLOFENAC [Concomitant]
     Active Substance: DICLOFENAC
     Indication: Chronic cutaneous lupus erythematosus
     Route: 065
  9. TIMOLOL [Concomitant]
     Active Substance: TIMOLOL
     Indication: Glaucoma
     Route: 047
  10. HYDROXYZINE [Concomitant]
     Active Substance: HYDROXYZINE HYDROCHLORIDE
     Indication: Chronic cutaneous lupus erythematosus
     Route: 065
  11. HYDROXYZINE [Concomitant]
     Active Substance: HYDROXYZINE HYDROCHLORIDE
     Indication: Insomnia
     Dosage: AS NEEDED OVER THE PAST 30 YEARS
     Route: 065
  12. ESCITALOPRAM [Concomitant]
     Active Substance: ESCITALOPRAM OXALATE
     Indication: Major depression
     Route: 065
  13. ESCITALOPRAM [Concomitant]
     Active Substance: ESCITALOPRAM OXALATE
     Indication: Generalised anxiety disorder

REACTIONS (1)
  - Hallucination, visual [Recovered/Resolved]
